FAERS Safety Report 8359522-3 (Version None)
Quarter: 2012Q2

REPORT INFORMATION
  Report Type: 
  Country: None (occurrence: None)
  Receive Date: 20120514
  Receipt Date: 20120514
  Transmission Date: 20120825
  Serious: Yes (Hospitalization)
  Sender: FDA-Public Use
  Company Number: None

PATIENT
  Age: 82 Year
  Sex: Male
  Weight: 73.2 kg

DRUGS (1)
  1. AMIODARONE HCL [Suspect]
     Indication: ATRIAL FIBRILLATION
     Dosage: MG BID PO
     Route: 048
     Dates: start: 20111005, end: 20120425

REACTIONS (2)
  - KERATOPATHY [None]
  - BLINDNESS [None]
